FAERS Safety Report 13693896 (Version 1)
Quarter: 2017Q2

REPORT INFORMATION
  Report Type: Spontaneous
  Country: US (occurrence: US)
  Receive Date: 20170627
  Receipt Date: 20170627
  Transmission Date: 20170830
  Serious: Yes (Disabling)
  Sender: FDA-Public Use
  Company Number: None

PATIENT
  Sex: Female

DRUGS (1)
  1. TRIAMCINOLONE/MOXIFLOXACIN 15:1MG/ML [Suspect]
     Active Substance: MOXIFLOXACIN\TRIAMCINOLONE
     Indication: CATARACT OPERATION
     Dosage: DOSE - 15: 1MG/ML, 1 ML?ROUTE - INTRAVITREAL INJ

REACTIONS (9)
  - Visual impairment [None]
  - Night blindness [None]
  - Macular oedema [None]
  - Macular degeneration [None]
  - Photopsia [None]
  - Visual acuity reduced [None]
  - Visual field defect [None]
  - Vision blurred [None]
  - Photophobia [None]

NARRATIVE: CASE EVENT DATE: 20161129
